FAERS Safety Report 11314669 (Version 1)
Quarter: 2015Q3

REPORT INFORMATION
  Report Type: Report from Study
  Country: IT (occurrence: IT)
  Receive Date: 20150727
  Receipt Date: 20150727
  Transmission Date: 20151125
  Serious: Yes (Life-Threatening, Hospitalization)
  Sender: FDA-Public Use
  Company Number: IT-ASTRAZENECA-2015SE71984

PATIENT
  Age: 29059 Day
  Sex: Male
  Weight: 60 kg

DRUGS (5)
  1. MADOPAR (LEVODOPA+BENSERAZIDE) [Concomitant]
     Indication: PARKINSON^S DISEASE
     Dosage: 200/50 (TABLET)
     Route: 048
  2. MIRAPEXIN [Concomitant]
     Active Substance: PRAMIPEXOLE
     Indication: PARKINSON^S DISEASE
  3. BRILIQUE [Suspect]
     Active Substance: TICAGRELOR
     Indication: ANTIPLATELET THERAPY
     Route: 048
     Dates: start: 20150318, end: 20150709
  4. CARDIRENE (ASA) [Suspect]
     Active Substance: ASPIRIN DL-LYSINE
     Indication: ANTIPLATELET THERAPY
     Route: 048
     Dates: end: 20150709
  5. ESBRIET [Concomitant]
     Active Substance: PIRFENIDONE
     Indication: PULMONARY FIBROSIS
     Dosage: 276MG
     Route: 048

REACTIONS (5)
  - Drug interaction [None]
  - Epidural haemorrhage [None]
  - Subarachnoid haemorrhage [Recovered/Resolved]
  - Subdural haemorrhage [None]
  - Head injury [Recovering/Resolving]

NARRATIVE: CASE EVENT DATE: 20150709
